FAERS Safety Report 6071542-0 (Version None)
Quarter: 2009Q1

REPORT INFORMATION
  Report Type: 
  Country: None (occurrence: None)
  Receive Date: 20090205
  Receipt Date: 20090205
  Transmission Date: 20090719
  Serious: Yes (Hospitalization)
  Sender: FDA-Public Use
  Company Number: None

PATIENT
  Age: 75 Year
  Sex: Male
  Weight: 74 kg

DRUGS (2)
  1. ASPIRIN [Suspect]
     Indication: ACUTE CORONARY SYNDROME
     Dosage: 1 TAB EVERY DAY PO
     Route: 048
     Dates: start: 20070611
  2. CLOPIDOGREL [Suspect]
     Indication: ACUTE CORONARY SYNDROME
     Dosage: 1 TAB EVERY DAY PO
     Route: 048
     Dates: start: 20021203

REACTIONS (8)
  - ANAEMIA [None]
  - CHEST PAIN [None]
  - DISCOMFORT [None]
  - HAEMATOMA [None]
  - POST PROCEDURAL HAEMORRHAGE [None]
  - POST PROCEDURAL SWELLING [None]
  - PROCEDURAL SITE REACTION [None]
  - PYREXIA [None]
